FAERS Safety Report 6773372-0 (Version None)
Quarter: 2010Q2

REPORT INFORMATION
  Report Type: 
  Country: None (occurrence: None)
  Receive Date: 20100614
  Receipt Date: 20100602
  Transmission Date: 20101027
  Serious: Yes (Hospitalization, Other)
  Sender: FDA-Public Use
  Company Number: 2009AC000026

PATIENT
  Age: 40 Year
  Sex: Male
  Weight: 107.9561 kg

DRUGS (35)
  1. DIGOXIN [Suspect]
     Indication: ATRIAL FIBRILLATION
     Dosage: 0.375 MG; QD; PO
     Route: 048
     Dates: start: 20050825
  2. DIGOXIN [Suspect]
     Dosage: 0.375 MG; QD; PO
     Route: 048
     Dates: start: 19940701
  3. DIGOXIN [Suspect]
     Dosage: 0.125 MG; QD; PO
     Route: 048
     Dates: start: 20040101, end: 20050629
  4. DIGOXIN [Suspect]
     Dosage: 0.125 MG; TID; PO
     Route: 048
     Dates: start: 20060101
  5. DIGOXIN [Suspect]
     Dosage: 0.25 MG; QD; PO
     Route: 048
     Dates: start: 19950101, end: 19990301
  6. DIGOXIN [Suspect]
     Indication: ARRHYTHMIA PROPHYLAXIS
     Dosage: 0.25 MG; QD; PO
     Route: 048
     Dates: start: 19920229
  7. DIGOXIN [Suspect]
     Dosage: 0.125 MG; QD; PO
     Route: 048
     Dates: start: 19990301, end: 19990601
  8. DIGOXIN [Suspect]
     Dosage: 0.25 MG; QD; PO
     Route: 048
     Dates: start: 19990601
  9. DIGOXIN [Suspect]
     Dosage: 0.25 MG; QD; PO
     Route: 048
     Dates: start: 19990601
  10. DIGOXIN [Suspect]
     Dosage: 0.25 MG; QD; PO
     Route: 048
     Dates: start: 20050630, end: 20060101
  11. DIGOXIN [Suspect]
     Dosage: 0.25 MG; QD; PO
     Route: 048
     Dates: start: 20070801
  12. NADOLOL [Concomitant]
  13. FUROSEMIDE [Concomitant]
  14. JANTOVEN [Concomitant]
  15. LOVENOX [Concomitant]
  16. WARFARIN [Concomitant]
  17. CYCLOBENZAPR [Concomitant]
  18. ACETAMINOPHEN AND HYDROCODONE BITARTRATE [Concomitant]
  19. AMOXICILLIN [Concomitant]
  20. CERDINIR [Concomitant]
  21. CLARITHROMYCIN [Concomitant]
  22. ALBUTEROL [Concomitant]
  23. ZYPREXA [Concomitant]
  24. POTASSIUM CHLORIDE [Concomitant]
  25. SOMA BETAPACE [Concomitant]
  26. SOTALOL [Concomitant]
  27. TOPROL-XL [Concomitant]
  28. LIPITOR [Concomitant]
  29. PROCAN [Concomitant]
  30. CALAN [Concomitant]
  31. QUINAGLUTE [Concomitant]
  32. DURATASS [Concomitant]
  33. CIALIS [Concomitant]
  34. ASPIRIN [Concomitant]
  35. ROCEPHIN [Concomitant]

REACTIONS (48)
  - ALCOHOL USE [None]
  - AMAUROSIS FUGAX [None]
  - ANAL FISSURE [None]
  - ASTHENIA [None]
  - ATRIAL FIBRILLATION [None]
  - ATRIAL FLUTTER [None]
  - BLOOD CHLORIDE DECREASED [None]
  - BUNDLE BRANCH BLOCK RIGHT [None]
  - CARDIAC FAILURE CONGESTIVE [None]
  - CARDIAC MURMUR [None]
  - CARDIOACTIVE DRUG LEVEL DECREASED [None]
  - CARDIOMEGALY [None]
  - CHEST PAIN [None]
  - CONVULSION [None]
  - DEPRESSION [None]
  - DIZZINESS [None]
  - DYSLIPIDAEMIA [None]
  - DYSPNOEA EXERTIONAL [None]
  - ELECTROCARDIOGRAM QRS COMPLEX SHORTENED [None]
  - ELECTROCARDIOGRAM ST-T SEGMENT ABNORMAL [None]
  - EYE HAEMORRHAGE [None]
  - FATIGUE [None]
  - HALLUCINATIONS, MIXED [None]
  - HEADACHE [None]
  - HEART RATE DECREASED [None]
  - HYPERHIDROSIS [None]
  - IMPLANT SITE HAEMATOMA [None]
  - INCORRECT DOSE ADMINISTERED [None]
  - INSOMNIA [None]
  - INTERNATIONAL NORMALISED RATIO INCREASED [None]
  - JOINT SWELLING [None]
  - LOBAR PNEUMONIA [None]
  - MULTIPLE INJURIES [None]
  - MYOCARDIAL ISCHAEMIA [None]
  - NODAL RHYTHM [None]
  - PALPITATIONS [None]
  - PLEURAL EFFUSION [None]
  - PROTHROMBIN TIME PROLONGED [None]
  - PULMONARY CONGESTION [None]
  - PULMONARY HYPERTENSION [None]
  - RECTAL HAEMORRHAGE [None]
  - SCHIZOPHRENIA, PARANOID TYPE [None]
  - SICK SINUS SYNDROME [None]
  - SINUSITIS [None]
  - SLEEP APNOEA SYNDROME [None]
  - SUPRAVENTRICULAR TACHYCARDIA [None]
  - TACHYCARDIA [None]
  - TREATMENT NONCOMPLIANCE [None]
